FAERS Safety Report 21188143 (Version 1)
Quarter: 2022Q3

REPORT INFORMATION
  Report Type: Report from Study
  Country: DE (occurrence: DE)
  Receive Date: 20220809
  Receipt Date: 20220809
  Transmission Date: 20221026
  Serious: Yes (Hospitalization)
  Sender: FDA-Public Use
  Company Number: DE-ABBVIE-22K-062-4495782-00

PATIENT
  Age: 77 Year
  Sex: Female

DRUGS (12)
  1. RINVOQ [Suspect]
     Active Substance: UPADACITINIB
     Indication: Rheumatoid arthritis
     Route: 048
     Dates: start: 202105, end: 202106
  2. HUMIRA [Suspect]
     Active Substance: ADALIMUMAB
     Indication: Rheumatoid arthritis
     Route: 058
     Dates: start: 201404, end: 201504
  3. METHOTREXATE SODIUM [Suspect]
     Active Substance: METHOTREXATE SODIUM
     Indication: Product used for unknown indication
     Dosage: DRUG STARTED BETWEEN 15 JUL 2014-14 OCT 2014?DRUG ENDED BETWEEN 16 APR 2015-02 DEC 2015
     Route: 065
     Dates: start: 2014, end: 2015
  4. METHOTREXATE SODIUM [Suspect]
     Active Substance: METHOTREXATE SODIUM
     Dosage: DRUG STARTED BETWEEN 16 APR 2015-02 DEC 2015?DRUG ENDED BETWEEN 06 DEC 2017-09 MAR 2018
     Route: 065
     Dates: start: 2015, end: 2018
  5. METHOTREXATE SODIUM [Suspect]
     Active Substance: METHOTREXATE SODIUM
     Dosage: DRUG STARTED BETWEEN 06 DEC 2017-09 MAR 2018?DRUG ENDED BETWEEN 30 OCT 2018-30 APR 2019
     Route: 065
     Dates: start: 2017, end: 2019
  6. XELJANZ [Concomitant]
     Active Substance: TOFACITINIB CITRATE
     Indication: Product used for unknown indication
     Route: 065
     Dates: start: 201912, end: 202005
  7. ORENCIA [Concomitant]
     Active Substance: ABATACEPT
     Indication: Product used for unknown indication
     Route: 065
     Dates: start: 202005, end: 202008
  8. TOCILIZUMAB [Concomitant]
     Active Substance: TOCILIZUMAB
     Indication: Product used for unknown indication
     Route: 065
     Dates: start: 201104, end: 201607
  9. MABTHERA [Concomitant]
     Active Substance: RITUXIMAB
     Indication: Product used for unknown indication
     Route: 065
     Dates: start: 201612
  10. MABTHERA [Concomitant]
     Active Substance: RITUXIMAB
     Route: 065
     Dates: start: 201709
  11. MABTHERA [Concomitant]
     Active Substance: RITUXIMAB
     Route: 065
     Dates: start: 201803
  12. MABTHERA [Concomitant]
     Active Substance: RITUXIMAB
     Route: 065
     Dates: start: 201906

REACTIONS (6)
  - Bursitis [Unknown]
  - Sinus node dysfunction [Unknown]
  - Pelvic fracture [Unknown]
  - Heart rate abnormal [Unknown]
  - Sepsis [Unknown]
  - Impaired healing [Unknown]

NARRATIVE: CASE EVENT DATE: 20210928
